FAERS Safety Report 8603670 (Version 3)
Quarter: 2012Q4

REPORT INFORMATION
  Report Type: Report from Study
  Country: DK (occurrence: CA)
  Receive Date: 20120607
  Receipt Date: 20121011
  Transmission Date: 20130627
  Serious: Yes (Other)
  Sender: FDA-Public Use
  Company Number: CA-FRI-1000031079

PATIENT
  Age: 68 None
  Sex: Male
  Weight: 80.36 kg

DRUGS (6)
  1. CITALOPRAM [Suspect]
     Indication: INSOMNIA
  2. LUPRON DEPOT [Suspect]
     Indication: PROSTATE CANCER
     Dosage: 30 mg, daily dose: 4 months depot
     Dates: start: 20100922
  3. LORAZEPAM [Suspect]
     Indication: INSOMNIA
     Route: 048
  4. ZOPICLONE [Suspect]
     Indication: INSOMNIA
  5. ZOPICLONE [Suspect]
  6. CLONAZEPAM [Suspect]

REACTIONS (17)
  - Prostate cancer metastatic [Unknown]
  - Neoplasm skin [Unknown]
  - Pain in extremity [Unknown]
  - Arthralgia [Unknown]
  - Sciatica [Unknown]
  - Gait disturbance [Unknown]
  - Fall [Unknown]
  - Insomnia [Unknown]
  - Somnolence [Unknown]
  - Fatigue [Unknown]
  - Memory impairment [Unknown]
  - Increased appetite [Unknown]
  - Weight increased [Unknown]
  - Prostatic specific antigen increased [Unknown]
  - Road traffic accident [Unknown]
  - Wrong drug administered [Unknown]
  - Off label use [Unknown]
